FAERS Safety Report 4324742-1 (Version None)
Quarter: 2004Q1

REPORT INFORMATION
  Report Type: 
  Country: None (occurrence: None)
  Receive Date: 20040322
  Receipt Date: 20040128
  Transmission Date: 20041129
  Serious: Yes (Death, Disabling)
  Sender: FDA-Public Use
  Company Number: 2004AP00329

PATIENT
  Age: 52 Year
  Sex: Female

DRUGS (21)
  1. IRESSA [Suspect]
     Indication: LUNG ADENOCARCINOMA
     Dosage: 250 MG DAILY PO
     Route: 048
     Dates: start: 20031120, end: 20040105
  2. IRESSA [Suspect]
     Indication: NON-SMALL CELL LUNG CANCER
     Dosage: 250 MG DAILY PO
     Route: 048
     Dates: start: 20031120, end: 20040105
  3. MYONAL [Concomitant]
  4. GLYCEREB [Concomitant]
  5. RINDERON [Concomitant]
  6. GASTER [Concomitant]
  7. CEFOTIAM HYDROCHLORIDE [Concomitant]
  8. PREDONINE [Concomitant]
  9. CRAVIT [Concomitant]
  10. MODACIN [Concomitant]
  11. MUCOSOL [Concomitant]
  12. MUCOSTA [Concomitant]
  13. VOLTAREN [Concomitant]
  14. ROHYPNOL [Concomitant]
  15. NO MATCH [Concomitant]
  16. NAIXAN [Concomitant]
  17. MAGLAX [Concomitant]
  18. PARAPLATIN [Concomitant]
  19. TAXOL [Concomitant]
  20. GEMZAR [Concomitant]
  21. RADIATION THERAPY [Concomitant]

REACTIONS (6)
  - ACUTE RESPIRATORY FAILURE [None]
  - ATELECTASIS [None]
  - LUNG DISORDER [None]
  - LUNG INFILTRATION [None]
  - METASTASES TO CENTRAL NERVOUS SYSTEM [None]
  - PNEUMONIA [None]
